FAERS Safety Report 25161355 (Version 1)
Quarter: 2025Q2

REPORT INFORMATION
  Report Type: Spontaneous
  Country: US (occurrence: None)
  Receive Date: 20250403
  Receipt Date: 20250403
  Transmission Date: 20250717
  Serious: No
  Sender: FDA-CTU
  Company Number: None

PATIENT
  Sex: Female

DRUGS (2)
  1. ZEJULA [Suspect]
     Active Substance: NIRAPARIB
     Indication: Ovarian cancer
     Dosage: FREQUENCY : DAILY;?
     Route: 048
     Dates: start: 20250304
  2. ZEJULA [Suspect]
     Active Substance: NIRAPARIB

REACTIONS (7)
  - Tremor [None]
  - Speech disorder [None]
  - Gait disturbance [None]
  - COVID-19 [None]
  - Nervous system disorder [None]
  - Platelet count decreased [None]
  - Balance disorder [None]
